FAERS Safety Report 10608810 (Version 2)
Quarter: 2014Q4

REPORT INFORMATION
  Report Type: Report from Study
  Country: US (occurrence: US)
  Receive Date: 20141125
  Receipt Date: 20141222
  Transmission Date: 20150529
  Serious: Yes (Hospitalization, Other)
  Sender: FDA-Public Use
  Company Number: US-GLAXOSMITHKLINE-US2014018042

PATIENT
  Age: 30 Year
  Sex: Female

DRUGS (2)
  1. TRAMETINIB TABLET [Suspect]
     Active Substance: TRAMETINIB
     Indication: COLORECTAL CANCER METASTATIC
     Dosage: 2 MG, 1D
     Dates: start: 20140930
  2. PALBOCICLIB CAPSULE [Suspect]
     Active Substance: PALBOCICLIB
     Indication: COLORECTAL CANCER METASTATIC
     Dosage: 75 MG, CYC
     Route: 048
     Dates: start: 20140930

REACTIONS (6)
  - Alanine aminotransferase increased [Recovered/Resolved]
  - Small intestinal obstruction [Recovered/Resolved]
  - Abdominal pain [Recovered/Resolved]
  - Vomiting [Recovered/Resolved]
  - Aspartate aminotransferase increased [Recovered/Resolved]
  - Nausea [Recovered/Resolved]

NARRATIVE: CASE EVENT DATE: 20141102
